FAERS Safety Report 10865805 (Version 2)
Quarter: 2015Q1

REPORT INFORMATION
  Report Type: Report from Study
  Country: RO (occurrence: RO)
  Receive Date: 20150224
  Receipt Date: 20150225
  Transmission Date: 20150721
  Serious: Yes (Hospitalization, Other)
  Sender: FDA-Public Use
  Company Number: RO-ABBVIE-15P-135-1349067-00

PATIENT
  Age: 67 Year
  Sex: Male

DRUGS (2)
  1. MADOPAR HBS [Concomitant]
     Active Substance: BENSERAZIDE HYDROCHLORIDE\LEVODOPA
     Indication: PARKINSON^S DISEASE
     Dosage: IN THE EVENING, WHEN THE PUMP STOPS
     Route: 048
  2. DUODOPA [Suspect]
     Active Substance: CARBIDOPA\LEVODOPA
     Indication: PARKINSON^S DISEASE
     Dosage: MD: 7 ML; CR: 6.1 ML/H; ED: 8 ML
     Route: 065
     Dates: start: 20130722

REACTIONS (14)
  - Gait disturbance [Unknown]
  - Movement disorder [Unknown]
  - Hyporeflexia [Unknown]
  - Abdominal pain [Unknown]
  - Parkinsonian gait [Unknown]
  - Hypertonia [Unknown]
  - Unevaluable event [Unknown]
  - Generalised tonic-clonic seizure [Recovering/Resolving]
  - Amblyopia [Unknown]
  - Motor dysfunction [Unknown]
  - Clonus [Unknown]
  - Seizure [Unknown]
  - Paraesthesia [Unknown]
  - Burning sensation [Unknown]

NARRATIVE: CASE EVENT DATE: 2014
